FAERS Safety Report 16754744 (Version 1)
Quarter: 2019Q3

REPORT INFORMATION
  Report Type: Spontaneous
  Country: US (occurrence: US)
  Receive Date: 20190710
  Receipt Date: 20190710
  Transmission Date: 20191005
  Serious: Yes (Hospitalization)
  Sender: FDA-Public Use
  Company Number: None

PATIENT
  Sex: Male

DRUGS (4)
  1. TAXOL [Concomitant]
     Active Substance: PACLITAXEL
  2. IFOSFAMIDE. [Concomitant]
     Active Substance: IFOSFAMIDE
  3. G-CSF (FILGRASTIM, AMGEN) [Concomitant]
     Active Substance: FILGRASTIM
  4. CISPLATIN (119875) [Suspect]
     Active Substance: CISPLATIN

REACTIONS (3)
  - Febrile neutropenia [None]
  - Campylobacter test positive [None]
  - Escherichia test positive [None]

NARRATIVE: CASE EVENT DATE: 20190626
